FAERS Safety Report 7781740-3 (Version None)
Quarter: 2011Q3

REPORT INFORMATION
  Report Type: 
  Country: None (occurrence: None)
  Receive Date: 20110927
  Receipt Date: 20110224
  Transmission Date: 20111222
  Serious: Yes (Hospitalization)
  Sender: FDA-Public Use
  Company Number: US-GLAXOSMITHKLINE-A0915640A

PATIENT
  Age: 58 Year
  Sex: Male

DRUGS (1)
  1. AVANDIA [Suspect]
     Indication: DIABETES MELLITUS
     Dosage: 8MG TWICE PER DAY
     Route: 048
     Dates: start: 20010101, end: 20080101

REACTIONS (8)
  - HYPERTENSION [None]
  - HYPERLIPIDAEMIA [None]
  - CORONARY ARTERY DISEASE [None]
  - OEDEMA [None]
  - OXYGEN SUPPLEMENTATION [None]
  - CHRONIC OBSTRUCTIVE PULMONARY DISEASE [None]
  - TRANSIENT ISCHAEMIC ATTACK [None]
  - MYOCARDIAL INFARCTION [None]
